FAERS Safety Report 13949505 (Version 3)
Quarter: 2017Q4

REPORT INFORMATION
  Report Type: Spontaneous
  Country: US (occurrence: US)
  Receive Date: 20170908
  Receipt Date: 20171005
  Transmission Date: 20180320
  Serious: No
  Sender: FDA-Public Use
  Company Number: US-GLAXOSMITHKLINE-US2017137519

PATIENT
  Sex: Male

DRUGS (3)
  1. FLOVENT DISKUS [Suspect]
     Active Substance: FLUTICASONE PROPIONATE
     Indication: ASTHMA
     Dosage: 2 PUFF(S), BID
     Route: 055
     Dates: end: 2016
  2. ADVAIR HFA [Suspect]
     Active Substance: FLUTICASONE PROPIONATE\SALMETEROL XINAFOATE
     Dosage: 2 PUFF(S), BID
     Route: 055
     Dates: start: 2016
  3. ADVAIR HFA [Suspect]
     Active Substance: FLUTICASONE PROPIONATE\SALMETEROL XINAFOATE
     Indication: ASTHMA
     Dosage: UNK
     Route: 055
     Dates: start: 2016, end: 2016

REACTIONS (10)
  - Product use issue [Unknown]
  - Off label use [Unknown]
  - Cough [Recovered/Resolved]
  - Wrong technique in device usage process [Unknown]
  - Wrong technique in product usage process [Unknown]
  - Product quality issue [Unknown]
  - Asthma [Unknown]
  - Drug effect decreased [Unknown]
  - Drug dose omission [Unknown]
  - Treatment noncompliance [Recovered/Resolved]
